FAERS Safety Report 6435197-5 (Version None)
Quarter: 2009Q4

REPORT INFORMATION
  Report Type: 
  Country: None (occurrence: None)
  Receive Date: 20091106
  Receipt Date: 20091022
  Transmission Date: 20100525
  Serious: Yes (Hospitalization)
  Sender: FDA-Public Use
  Company Number: DSJ-2009-13866

PATIENT
  Age: 75 Year
  Sex: Male
  Weight: 82.2 kg

DRUGS (21)
  1. OLMESARTAN MEDOXOMIL [Suspect]
     Indication: ESSENTIAL HYPERTENSION
     Dosage: 10 MG (10 MG, 1  IN 1 D),PER ORAL; 20 MG (20 MG, 1  IN 1 D),PER ORAL
     Route: 048
     Dates: start: 20070301
  2. AMLODIPINE [Concomitant]
  3. BUFFERIN [Concomitant]
  4. BEZATOL SR (BEZAFIBRATE) (BEZAFIBRATE) [Concomitant]
  5. DAONIL (GLIBENCLAMIDE) (GLIBENCLAMIDE) [Concomitant]
  6. MARZULENE-S(LEVOGLUTAMIDE, SODIUM GUALENATE) [Concomitant]
  7. CIBENOL            (CIBENZOLINE SUCCINATE) [Concomitant]
  8. DILTIAZEM HYDROCHLORIDE [Concomitant]
  9. SIGMART (NICORANDIL)(NICORANNDIL) [Concomitant]
  10. LAC-B (LACTOBACILLUS BIFIDUS LYOPHILIZED [Concomitant]
  11. ISOSORBIDE DINITRATE [Concomitant]
  12. ALOSITOL (ALLOPURINOL) (ALLOPURTNOL) [Concomitant]
  13. BASEN (VOGLIBOSE) (VOGLIBOSE) [Concomitant]
  14. MEDET (METFORMIN HYDROCHLORIDE) (METFORMIN HYDROCHLORIDE) [Concomitant]
  15. ASPIRIN [Concomitant]
  16. TAKEPRON OD (LANSOPRAZOLE) (LANSOPRAZOLE) [Concomitant]
  17. STARSIS (NATEGLINIDE) (NATEGLINIDE) [Concomitant]
  18. EPADEL S (ETHYL ICOSAPENTATE) (ETHYL ICOSAPENTATE) [Concomitant]
  19. ATELEC (CILNIDIPINE) (CILNIDIPINE) [Concomitant]
  20. LANTUS 300 (INSULIN GLARGINE) [Concomitant]
  21. LIVALO [Concomitant]

REACTIONS (2)
  - CONDITION AGGRAVATED [None]
  - DIABETES MELLITUS [None]
